FAERS Safety Report 4993395-1 (Version None)
Quarter: 2006Q2

REPORT INFORMATION
  Report Type: 
  Country: None (occurrence: None)
  Receive Date: 20060505
  Receipt Date: 20060426
  Transmission Date: 20061013
  Serious: Yes (Hospitalization)
  Sender: FDA-Public Use
  Company Number: FR-JNJFOC-20060405709

PATIENT
  Age: 73 Year
  Sex: Male
  Weight: 60 kg

DRUGS (9)
  1. REMINYL [Suspect]
     Route: 048
  2. PROTHIADEN [Suspect]
     Indication: DRUG USE FOR UNKNOWN INDICATION
     Route: 048
  3. YOHIMBINE HOUDE [Suspect]
     Indication: DRUG USE FOR UNKNOWN INDICATION
     Route: 065
  4. PROZAC [Interacting]
     Indication: DRUG USE FOR UNKNOWN INDICATION
     Route: 065
  5. SOPROL [Suspect]
     Indication: DRUG USE FOR UNKNOWN INDICATION
     Route: 065
  6. LEVOTHYROX [Concomitant]
     Route: 065
  7. LEXOMIL [Concomitant]
     Route: 065
  8. ASPIRIN [Concomitant]
     Route: 065
  9. MOPRAL [Concomitant]
     Route: 065

REACTIONS (5)
  - AGGRESSION [None]
  - AGITATION [None]
  - DISORIENTATION [None]
  - DRUG INTERACTION [None]
  - FALL [None]
